FAERS Safety Report 15654252 (Version 3)
Quarter: 2018Q4

REPORT INFORMATION
  Report Type: Spontaneous
  Country: GB (occurrence: GB)
  Receive Date: 20181125
  Receipt Date: 20181212
  Transmission Date: 20190205
  Serious: Yes (Life-Threatening, Hospitalization, Other)
  Sender: FDA-Public Use
  Company Number: GB-BAXTER-2018BAX011725

PATIENT
  Age: 29 Year
  Sex: Female

DRUGS (32)
  1. SEVOFLURANE BAXTER, 100% INHALATION VAPOUR, LIQUID [Suspect]
     Active Substance: SEVOFLURANE
     Indication: ASTHMA
     Dosage: 8 %, UNK
     Route: 055
  2. EPINEPHRINE. [Suspect]
     Active Substance: EPINEPHRINE
     Indication: ASTHMA
     Route: 065
  3. PREDNISOLONE. [Suspect]
     Active Substance: PREDNISOLONE
     Indication: ASTHMA
     Dosage: 30 MG, UNK
     Route: 048
  4. THEOPHYLLINE [Concomitant]
     Active Substance: THEOPHYLLINE ANHYDROUS
     Indication: ASTHMA
     Route: 065
  5. THEOPHYLLINE [Concomitant]
     Active Substance: THEOPHYLLINE ANHYDROUS
     Dosage: UNK
     Route: 065
  6. MONTELUKAST SODIUM. [Suspect]
     Active Substance: MONTELUKAST SODIUM
     Indication: ASTHMA
     Dosage: UNK
     Route: 048
  7. ALBUTEROL. [Suspect]
     Active Substance: ALBUTEROL
     Indication: ASTHMA
     Dosage: UNK
     Route: 042
  8. THEOPHYLLINE [Concomitant]
     Active Substance: THEOPHYLLINE ANHYDROUS
     Dosage: UNK
     Route: 065
  9. SEVOFLURANE BAXTER, 100% INHALATION VAPOUR, LIQUID [Suspect]
     Active Substance: SEVOFLURANE
     Indication: ASTHMA
     Route: 055
  10. SALBUTAMOL SULFATE [Suspect]
     Active Substance: ALBUTEROL SULFATE
     Dosage: 250 MCG, UNK (2 BOLUSES)
     Route: 040
  11. THEOPHYLLINE [Suspect]
     Active Substance: THEOPHYLLINE ANHYDROUS
     Indication: PRODUCT USED FOR UNKNOWN INDICATION
     Route: 065
  12. SALBUTAMOL SULFATE [Suspect]
     Active Substance: ALBUTEROL SULFATE
     Indication: ASTHMA
     Dosage: UNK ((NEBULISER)
     Route: 065
  13. KETAMINE [Suspect]
     Active Substance: KETAMINE
     Dosage: UNK (INCREASED TO 45 MICROG/KG/MIN)
     Route: 042
  14. PREDNISOLONE. [Concomitant]
     Active Substance: PREDNISOLONE
     Indication: ASTHMA
     Route: 065
  15. SALBUTAMOL SULFATE [Suspect]
     Active Substance: ALBUTEROL SULFATE
     Dosage: 15 MG, UNK (NEBULISATION)
     Route: 065
  16. IPRATOPIUM BROMIDE [Suspect]
     Active Substance: IPRATROPIUM BROMIDE
     Indication: ASTHMA
     Dosage: 0.5 MG, UNK
     Route: 065
  17. SALBUTAMOL SULFATE [Suspect]
     Active Substance: ALBUTEROL SULFATE
     Dosage: 15 MG, UNK ((NEBULISER : IN REPEATED DOSES)
     Route: 065
  18. HYDROCORTISONE. [Suspect]
     Active Substance: HYDROCORTISONE
     Indication: ASTHMA
     Dosage: 100 MG, UNK
     Route: 042
  19. MAGNESIUM SULPHATE [Suspect]
     Active Substance: MAGNESIUM SULFATE
     Dosage: UNK
     Route: 065
  20. THEOPHYLLINE [Suspect]
     Active Substance: THEOPHYLLINE ANHYDROUS
     Route: 065
  21. SALBUTAMOL SULFATE [Suspect]
     Active Substance: ALBUTEROL SULFATE
     Dosage: 12.3 MG, UNK
     Route: 042
  22. HYDROCORTISONE. [Suspect]
     Active Substance: HYDROCORTISONE
     Route: 065
  23. EPINEPHRINE. [Suspect]
     Active Substance: EPINEPHRINE
     Dosage: 350 MCG, UNK (DILUTED IN SMALL INCREMENTS)
     Route: 065
  24. MAGNESIUM SULPHATE [Suspect]
     Active Substance: MAGNESIUM SULFATE
     Indication: ASTHMA
     Dosage: 2 G, UNK
     Route: 042
  25. PREDNISOLONE. [Suspect]
     Active Substance: PREDNISOLONE
     Route: 048
  26. PREDNISOLONE. [Suspect]
     Active Substance: PREDNISOLONE
     Route: 048
  27. THEOPHYLLINE [Suspect]
     Active Substance: THEOPHYLLINE ANHYDROUS
     Indication: ASTHMA
     Dosage: UNK
     Route: 065
  28. MAGNESIUM SULFATE. [Concomitant]
     Active Substance: MAGNESIUM SULFATE
     Indication: ASTHMA
     Dosage: UNK
     Route: 065
  29. KETAMINE [Suspect]
     Active Substance: KETAMINE
     Indication: ASTHMA
     Dosage: UNK
     Route: 042
  30. IPRATOPIUM BROMIDE [Suspect]
     Active Substance: IPRATROPIUM BROMIDE
     Dosage: 0.5 MG, UNK (NEBULISATION)
     Route: 065
  31. MONTELUKAST [Concomitant]
     Active Substance: MONTELUKAST SODIUM
     Indication: ASTHMA
     Route: 065
  32. THEOPHYLLINE [Concomitant]
     Active Substance: THEOPHYLLINE ANHYDROUS
     Dosage: UNK
     Route: 065

REACTIONS (21)
  - Respiratory rate increased [Recovered/Resolved]
  - PCO2 increased [Recovering/Resolving]
  - Lung hyperinflation [Recovered/Resolved]
  - Off label use [Unknown]
  - Cyanosis [Recovering/Resolving]
  - Bronchospasm [Recovered/Resolved]
  - Blood pH decreased [Recovering/Resolving]
  - Hypercapnia [Recovering/Resolving]
  - PO2 decreased [Recovering/Resolving]
  - Wheezing [Recovered/Resolved]
  - Drug ineffective [Unknown]
  - Status asthmaticus [Recovered/Resolved]
  - Asthma [Recovered/Resolved]
  - Oxygen saturation decreased [Recovering/Resolving]
  - Respiratory acidosis [Recovering/Resolving]
  - Acute respiratory failure [Recovering/Resolving]
  - Blood lactic acid increased [Recovering/Resolving]
  - Dyspnoea [Recovering/Resolving]
  - Airway peak pressure increased [Recovering/Resolving]
  - Asthma [Recovering/Resolving]
  - Blood bicarbonate decreased [Recovering/Resolving]
